FAERS Safety Report 9691269 (Version 2)
Quarter: 2013Q4

REPORT INFORMATION
  Report Type: Spontaneous
  Country: GB (occurrence: GB)
  Receive Date: 20131115
  Receipt Date: 20131121
  Transmission Date: 20140711
  Serious: Yes (Life-Threatening, Hospitalization)
  Sender: FDA-Public Use
  Company Number: GB-ASTRAZENECA-2013SE84090

PATIENT
  Age: 16 Year
  Sex: Female

DRUGS (6)
  1. FELODIPINE [Suspect]
     Dosage: 280 MG (3.3 MG/KG)
     Route: 048
  2. DOXAZOSIN [Suspect]
     Dosage: 28 MG (0.33 MG/KG)
  3. BENDROFLUMETHIAZIDE [Suspect]
     Dosage: 70 MG (0.81 MG/KG)
  4. FLUCLOXACILLIN [Suspect]
     Dosage: 3.5 G (41 MG/KG)
  5. ALCOHOL [Suspect]
  6. CINNARIZINE [Suspect]
     Dosage: 210 MG (2.4 MG/KG)

REACTIONS (3)
  - Overdose [Unknown]
  - Circulatory collapse [Recovered/Resolved]
  - Toxicity to various agents [Recovered/Resolved]
